FAERS Safety Report 21557189 (Version 4)
Quarter: 2025Q1

REPORT INFORMATION
  Report Type: Spontaneous
  Country: US (occurrence: US)
  Receive Date: 20221105
  Receipt Date: 20250220
  Transmission Date: 20250409
  Serious: Yes (Life-Threatening, Hospitalization, Other)
  Sender: AUROBINDO
  Company Number: US-MLMSERVICE-20221018-3866781-1

PATIENT
  Age: 54 Year
  Sex: Female

DRUGS (2)
  1. AMITRIPTYLINE HYDROCHLORIDE [Suspect]
     Active Substance: AMITRIPTYLINE HYDROCHLORIDE
     Indication: Product used for unknown indication
     Route: 048
  2. LEVETIRACETAM [Suspect]
     Active Substance: LEVETIRACETAM
     Indication: Product used for unknown indication
     Route: 048

REACTIONS (4)
  - Unresponsive to stimuli [Unknown]
  - Depressed level of consciousness [Unknown]
  - Intentional overdose [Unknown]
  - Electrocardiogram QT prolonged [Unknown]
